APPROVED DRUG PRODUCT: FENOFIBRATE
Active Ingredient: FENOFIBRATE
Strength: 48MG
Dosage Form/Route: TABLET;ORAL
Application: A205118 | Product #001 | TE Code: AB
Applicant: AUROBINDO PHARMA LTD
Approved: May 5, 2016 | RLD: No | RS: No | Type: RX